FAERS Safety Report 5811489-5 (Version None)
Quarter: 2008Q3

REPORT INFORMATION
  Report Type: 
  Country: None (occurrence: None)
  Receive Date: 20080714
  Receipt Date: 20080703
  Transmission Date: 20090109
  Serious: Yes (Other)
  Sender: FDA-Public Use
  Company Number: GXKR2007GB00546

PATIENT
  Age: 37 Year
  Sex: Female
  Weight: 107 kg

DRUGS (8)
  1. FLUOXETINE [Suspect]
     Indication: ANXIETY
     Dosage: 20 MG
     Dates: start: 20060914
  2. FLUOXETINE [Suspect]
     Indication: PANIC REACTION
     Dosage: 20 MG
     Dates: start: 20060914
  3. LUSTRAL (SERTRALINE HYDROCHLORIDE) UNKNOWN [Suspect]
     Indication: ANXIETY
     Dosage: 50 MG, QD, ORAL
     Route: 048
     Dates: end: 20060914
  4. LUSTRAL (SERTRALINE HYDROCHLORIDE) UNKNOWN [Suspect]
     Indication: DEPRESSION
     Dosage: 50 MG, QD, ORAL
     Route: 048
     Dates: end: 20060914
  5. LUSTRAL (SERTRALINE HYDROCHLORIDE) UNKNOWN [Suspect]
     Indication: PANIC REACTION
     Dosage: 50 MG, QD, ORAL
     Route: 048
     Dates: end: 20060914
  6. LUSTRAL (SERTRALINE HYDROCHLORIDE) UNKNOWN [Suspect]
     Indication: ANXIETY
     Dosage: 50 MG, QD, ORAL
     Route: 048
     Dates: start: 20060323
  7. LUSTRAL (SERTRALINE HYDROCHLORIDE) UNKNOWN [Suspect]
     Indication: DEPRESSION
     Dosage: 50 MG, QD, ORAL
     Route: 048
     Dates: start: 20060323
  8. LUSTRAL (SERTRALINE HYDROCHLORIDE) UNKNOWN [Suspect]
     Indication: PANIC REACTION
     Dosage: 50 MG, QD, ORAL
     Route: 048
     Dates: start: 20060323

REACTIONS (6)
  - BLOOD PRESSURE INCREASED [None]
  - CAESAREAN SECTION [None]
  - DRUG EXPOSURE DURING PREGNANCY [None]
  - DRUG INEFFECTIVE [None]
  - PLACENTA PRAEVIA [None]
  - VAGINAL HAEMORRHAGE [None]
